FAERS Safety Report 20191933 (Version 2)
Quarter: 2021Q4

REPORT INFORMATION
  Report Type: Spontaneous
  Country: JP (occurrence: JP)
  Receive Date: 20211216
  Receipt Date: 20211229
  Transmission Date: 20220304
  Serious: Yes (Other)
  Sender: FDA-Public Use
  Company Number: JP-TEVA-2021-JP-1986837

PATIENT
  Age: 81 Year
  Sex: Female

DRUGS (11)
  1. GLIMEPIRIDE [Interacting]
     Active Substance: GLIMEPIRIDE
     Indication: Type 2 diabetes mellitus
     Dosage: 2 MILLIGRAM DAILY; 2 MG/DAY (TWICE A DAY, AFTER BREAKFAST AND DINNER)
     Route: 065
  2. VOGLIBOSE [Suspect]
     Active Substance: VOGLIBOSE
     Indication: Type 2 diabetes mellitus
     Dosage: .6 MILLIGRAM DAILY; 0.6 MG/DAY (THREE TIMES A DAY JUST BEFORE MEALS)
     Route: 065
  3. WARFARIN POTASSIUM [Interacting]
     Active Substance: WARFARIN POTASSIUM
     Indication: Thrombosis prophylaxis
     Dosage: DAILY
     Route: 065
  4. BUCOLOME [Interacting]
     Active Substance: BUCOLOME
     Indication: Drug therapy enhancement
     Dosage: 300 MILLIGRAM DAILY; STARTED ON POSTOPERATIVE DAY 9
     Route: 065
  5. TELMISARTAN [Concomitant]
     Active Substance: TELMISARTAN
     Indication: Hypertension
     Dosage: 40 MILLIGRAM DAILY; 40 MG/DAY (ONCE A DAY AFTER BREAKFAST), BEING TAKEN WITH GOOD COMPLIANCE FOR MOR
     Route: 065
  6. AMLODIPINE [Concomitant]
     Active Substance: AMLODIPINE BESYLATE
     Dosage: 5 MILLIGRAM DAILY; 5 MG/DAY (ONCE A DAY AFTER BREAKFAST), BEING TAKEN WITH GOOD COMPLIANCE FOR MORE
     Route: 065
  7. CARBOCYSTEINE [Concomitant]
     Active Substance: CARBOCYSTEINE
     Indication: Product used for unknown indication
     Dosage: 1500 MILLIGRAM DAILY;
     Route: 065
  8. MAGNESIUM OXIDE [Concomitant]
     Active Substance: MAGNESIUM OXIDE
     Indication: Product used for unknown indication
     Dosage: 990 MILLIGRAM DAILY;
     Route: 065
  9. SODIUM FERROUS CITRATE [Concomitant]
     Active Substance: SODIUM FERROUS CITRATE
     Indication: Product used for unknown indication
     Dosage: 100 MILLIGRAM DAILY;
     Route: 065
  10. FUROSEMIDE [Concomitant]
     Active Substance: FUROSEMIDE
     Indication: Product used for unknown indication
     Dosage: 20 MILLIGRAM DAILY;
     Route: 065
  11. HEPARIN SODIUM [Concomitant]
     Active Substance: HEPARIN SODIUM
     Indication: Anticoagulant therapy
     Dosage: 14400 IU (INTERNATIONAL UNIT) DAILY;
     Route: 065

REACTIONS (2)
  - Hypoglycaemia [Recovering/Resolving]
  - Drug interaction [Unknown]
